FAERS Safety Report 14567215 (Version 1)
Quarter: 2018Q1

REPORT INFORMATION
  Report Type: Report from Study
  Country: DE (occurrence: DE)
  Receive Date: 20180223
  Receipt Date: 20180223
  Transmission Date: 20180509
  Serious: Yes (Hospitalization)
  Sender: FDA-Public Use
  Company Number: DE-TEVA-2018-DE-859188

PATIENT
  Age: 70 Year
  Sex: Male
  Weight: 57 kg

DRUGS (7)
  1. DEXAMETHASONE. [Suspect]
     Active Substance: DEXAMETHASONE
     Indication: PLASMA CELL MYELOMA
     Route: 065
     Dates: start: 20170130, end: 20170713
  2. TORASEMID AAA PHARMA [Concomitant]
     Indication: OEDEMA PERIPHERAL
     Route: 048
     Dates: start: 20170210, end: 20170223
  3. TORASEMID AAA PHARMA [Concomitant]
     Route: 048
     Dates: start: 20170223
  4. REVLIMID [Suspect]
     Active Substance: LENALIDOMIDE
     Dosage: 20 MILLIGRAM
     Route: 048
     Dates: start: 20170302, end: 20170621
  5. ASS 100 1A PHARMA [Concomitant]
     Indication: PROPHYLAXIS
     Route: 048
     Dates: start: 20170124
  6. REVLIMID [Suspect]
     Active Substance: LENALIDOMIDE
     Indication: PLASMA CELL MYELOMA
     Dosage: 25 MILLIGRAM
     Route: 048
     Dates: start: 20170130, end: 20170220
  7. INNOHEP [Concomitant]
     Active Substance: TINZAPARIN SODIUM
     Indication: OEDEMA PERIPHERAL
     Route: 058
     Dates: start: 20170210, end: 20170224

REACTIONS (2)
  - Infection [Unknown]
  - Platelet count decreased [Not Recovered/Not Resolved]

NARRATIVE: CASE EVENT DATE: 20170710
